FAERS Safety Report 4786586-6 (Version None)
Quarter: 2005Q3

REPORT INFORMATION
  Report Type: 
  Country: None (occurrence: None)
  Receive Date: 20050927
  Receipt Date: 20050601
  Transmission Date: 20060218
  Serious: No
  Sender: FDA-Public Use
  Company Number: USA050699505

PATIENT
  Age: 28 Year
  Sex: Female
  Weight: 73 kg

DRUGS (7)
  1. STRATTERA [Suspect]
     Dosage: 120 MG DAY
  2. LEXAPRO [Concomitant]
  3. PRILOSEC [Concomitant]
  4. ZELNORM [Concomitant]
  5. VERAPAMIL [Concomitant]
  6. SYNTHROID [Concomitant]
  7. PROVIGIL [Concomitant]

REACTIONS (6)
  - COORDINATION ABNORMAL [None]
  - DYSKINESIA [None]
  - MUSCLE TWITCHING [None]
  - PRESCRIBED OVERDOSE [None]
  - THINKING ABNORMAL [None]
  - TIC [None]
